FAERS Safety Report 5325174-X (Version None)
Quarter: 2007Q2

REPORT INFORMATION
  Report Type: 
  Country: None (occurrence: None)
  Receive Date: 20070515
  Receipt Date: 20070514
  Transmission Date: 20071010
  Serious: Yes (Hospitalization)
  Sender: FDA-Public Use
  Company Number: A0651209A

PATIENT
  Age: 36 Year
  Sex: Female

DRUGS (2)
  1. VALTREX [Suspect]
     Indication: GENITAL HERPES
     Route: 048
  2. UNKNOWN [Concomitant]

REACTIONS (5)
  - CHOLELITHIASIS [None]
  - HEPATIC ENZYME INCREASED [None]
  - NAUSEA [None]
  - PAIN [None]
  - VOMITING [None]
